FAERS Safety Report 23144003 (Version 1)
Quarter: 2023Q4

REPORT INFORMATION
  Report Type: Spontaneous
  Country: US (occurrence: US)
  Receive Date: 20231103
  Receipt Date: 20231103
  Transmission Date: 20240109
  Serious: Yes (Other)
  Sender: FDA-Public Use
  Company Number: US-BAYER-2023A154929

PATIENT
  Age: 63 Year
  Sex: Male

DRUGS (3)
  1. NAPROXEN SODIUM [Suspect]
     Active Substance: NAPROXEN SODIUM
     Dosage: 16 DF
  2. IBUPROFEN [Concomitant]
     Active Substance: IBUPROFEN
     Dosage: UNK
  3. KETOCONAZOLE [Concomitant]
     Active Substance: KETOCONAZOLE
     Dosage: UNK

REACTIONS (8)
  - Hyperbilirubinaemia [None]
  - Toxicity to various agents [None]
  - Suicide attempt [None]
  - Overdose [None]
  - Hallucination, auditory [None]
  - Depression [None]
  - Homicidal ideation [None]
  - Delusion [None]
